FAERS Safety Report 7126369-5 (Version None)
Quarter: 2010Q4

REPORT INFORMATION
  Report Type: 
  Country: None (occurrence: None)
  Receive Date: 20101129
  Receipt Date: 20101119
  Transmission Date: 20110411
  Serious: Yes (Disabling, Other)
  Sender: FDA-Public Use
  Company Number: CA-ABBOTT-10P-028-0671442-00

PATIENT
  Age: 61 Year
  Sex: Female

DRUGS (10)
  1. BIAXIN [Suspect]
     Indication: PRODUCT USED FOR UNKNOWN INDICATION
     Dates: start: 20091112
  2. RITUXIMAB [Suspect]
     Indication: NON-HODGKIN'S LYMPHOMA
     Dosage: INITIAL DOSE
     Route: 042
     Dates: start: 20071101
  3. RITUXIMAB [Suspect]
     Dosage: MAINTENANCE DOSE, EVERY 3 MONTHS
     Dates: end: 20091101
  4. CALCIUM [Concomitant]
     Indication: PRODUCT USED FOR UNKNOWN INDICATION
  5. AMOXICILLIN AND CLAVULANATE POTASSIUM [Concomitant]
     Indication: PRODUCT USED FOR UNKNOWN INDICATION
     Dates: start: 20090101
  6. CYCLOPHOSPHAMIDE [Concomitant]
     Indication: CHEMOTHERAPY
  7. DOXORUBICIN HCL [Concomitant]
     Indication: CHEMOTHERAPY
  8. PREDNISONE [Concomitant]
     Indication: CHEMOTHERAPY
  9. VINCRISTINE SULFATE [Concomitant]
     Indication: CHEMOTHERAPY
  10. VITAMIN D [Concomitant]
     Indication: PRODUCT USED FOR UNKNOWN INDICATION

REACTIONS (3)
  - DEAFNESS [None]
  - OEDEMA PERIPHERAL [None]
  - SUDDEN HEARING LOSS [None]
